FAERS Safety Report 5827124-6 (Version None)
Quarter: 2008Q3

REPORT INFORMATION
  Report Type: 
  Country: None (occurrence: None)
  Receive Date: 20080729
  Receipt Date: 20080729
  Transmission Date: 20090109
  Serious: Yes (Life-Threatening, Disabling)
  Sender: FDA-Public Use
  Company Number: None

PATIENT
  Age: 32 Year
  Sex: Female
  Weight: 80.2867 kg

DRUGS (1)
  1. PROSTIN E2 [Suspect]
     Indication: LABOUR INDUCTION
     Dosage: 1 SUPPOSITORY VAG
     Route: 067
     Dates: start: 20050326, end: 20050326

REACTIONS (3)
  - CONVULSION [None]
  - PAIN [None]
  - SWOLLEN TONGUE [None]
